FAERS Safety Report 6881810-8 (Version None)
Quarter: 2010Q3

REPORT INFORMATION
  Report Type: 
  Country: None (occurrence: None)
  Receive Date: 20100728
  Receipt Date: 20100728
  Transmission Date: 20110219
  Serious: No
  Sender: FDA-Public Use
  Company Number: None

PATIENT
  Sex: Female
  Weight: 110.2241 kg

DRUGS (1)
  1. CAPOTEN [Suspect]
     Indication: HYPERTENSION
     Dosage: 25 MG TID ORAL
     Route: 048
     Dates: start: 20091228, end: 20100630

REACTIONS (1)
  - COUGH [None]
